FAERS Safety Report 8192207-5 (Version None)
Quarter: 2012Q1

REPORT INFORMATION
  Report Type: 
  Country: None (occurrence: None)
  Receive Date: 20120307
  Receipt Date: 20120301
  Transmission Date: 20120608
  Serious: Yes (Other)
  Sender: FDA-Public Use
  Company Number: JP-PFIZER INC-2012022215

PATIENT
  Age: 52 Year
  Sex: Female
  Weight: 52 kg

DRUGS (3)
  1. ZITHROMAX [Suspect]
     Indication: PHARYNGITIS
     Dosage: 500 MG, 1X/DAY
     Route: 048
     Dates: start: 20120126, end: 20120126
  2. VALTREX [Concomitant]
     Indication: HERPES VIRUS INFECTION
     Dosage: 500 MG, 2X/DAY
     Route: 048
     Dates: start: 20120120, end: 20120122
  3. VALTREX [Concomitant]
     Dosage: 1000 MG, 3X/DAY
     Route: 048
     Dates: start: 20120123, end: 20120128

REACTIONS (6)
  - PYREXIA [None]
  - DIARRHOEA [None]
  - HEADACHE [None]
  - TACHYCARDIA [None]
  - BLOOD PRESSURE INCREASED [None]
  - HYPOAESTHESIA [None]
